FAERS Safety Report 9391531 (Version 1)
Quarter: 2013Q3

REPORT INFORMATION
  Report Type: Spontaneous
  Country: US (occurrence: US)
  Receive Date: 20130709
  Receipt Date: 20130709
  Transmission Date: 20140515
  Serious: Yes (Other)
  Sender: FDA-Public Use
  Company Number: US-JNJFOC-20130618848

PATIENT
  Age: 69 Year
  Sex: Male

DRUGS (1)
  1. ZYTIGA [Suspect]
     Indication: PROSTATE CANCER
     Route: 048
     Dates: start: 20130227, end: 20130303

REACTIONS (4)
  - Malaise [Recovered/Resolved]
  - Swelling [Recovered/Resolved]
  - Dysuria [Recovered/Resolved]
  - Incorrect dose administered [Unknown]
